FAERS Safety Report 9804328 (Version 1)
Quarter: 2014Q1

REPORT INFORMATION
  Report Type: Spontaneous
  Country: DE (occurrence: None)
  Receive Date: 20140106
  Receipt Date: 20140106
  Transmission Date: 20141002
  Serious: Yes (Life-Threatening, Hospitalization)
  Sender: FDA-Public Use
  Company Number: VAL_02884_2013

PATIENT
  Sex: Female
  Weight: 3.9 kg

DRUGS (2)
  1. METOPROLOL (METOPROLOL - METOPROLOL TARTRATE) [Suspect]
     Indication: MATERNAL EXPOSURE TIMING UNSPECIFIED
     Dosage: (100 MG, DAILY TRANSPLACENTAL), (200 MG, DAILY TRANSPLACENTAL)
     Dates: start: 20130610, end: 20130705
  2. CANDESARTAN (CANDERSARTAN - 1 A PHARM (CANDESARTAN CILEXETIL)) [Suspect]
     Indication: MATERNAL EXPOSURE TIMING UNSPECIFIED
     Dosage: (DF [MATERNAL DOSE (28.-30. GESTATIONAL WEEK)] TRANSPLACENTAL)

REACTIONS (7)
  - Cerebral infarction foetal [None]
  - Intraventricular haemorrhage [None]
  - Renal infarct [None]
  - Vena cava thrombosis [None]
  - Renal failure [None]
  - Neonatal disorder [None]
  - Maternal drugs affecting foetus [None]
